FAERS Safety Report 11972022 (Version 2)
Quarter: 2016Q1

REPORT INFORMATION
  Report Type: Spontaneous
  Country: US (occurrence: US)
  Receive Date: 20160128
  Receipt Date: 20160217
  Transmission Date: 20160526
  Serious: No
  Sender: FDA-Public Use
  Company Number: US-PFIZER INC-2016045524

PATIENT
  Age: 62 Year
  Sex: Female
  Weight: 63.49 kg

DRUGS (11)
  1. LEVOTHYROXINE. [Concomitant]
     Active Substance: LEVOTHYROXINE
     Indication: THYROID DISORDER
     Dosage: UNK (FIRST CONFIRMED THE DOSE AS ^0.50 MG^ ONE A DAY AND LATER STATED AS ^150^.)
  2. ESTRADIOL. [Concomitant]
     Active Substance: ESTRADIOL
     Dosage: 1.5 MG, UNK
  3. ADAPTAN [Concomitant]
     Dosage: UNK
  4. ZOLPIDEM [Concomitant]
     Active Substance: ZOLPIDEM\ZOLPIDEM TARTRATE
     Dosage: 12.5 MG, 1X/DAY  (AT NIGHT)
  5. TESTOSTERONE. [Concomitant]
     Active Substance: TESTOSTERONE
     Dosage: 2 ML, 1X/DAY (APPLIED AT NIGHT)
     Route: 061
  6. FLEXON [Concomitant]
     Active Substance: ACETAMINOPHEN\IBUPROFEN
     Indication: OSTEOARTHRITIS
     Dosage: UNK
  7. CYMBALTA [Concomitant]
     Active Substance: DULOXETINE HYDROCHLORIDE
     Dosage: UNK
  8. MAGNESIUM [Concomitant]
     Active Substance: MAGNESIUM
     Dosage: UNK
  9. LYRICA [Suspect]
     Active Substance: PREGABALIN
     Indication: FIBROMYALGIA
     Dosage: 75 MG, 2X/DAY
     Route: 048
  10. DHEA [Concomitant]
     Active Substance: PRASTERONE
     Dosage: UNK
  11. CORTISONE [Concomitant]
     Active Substance: CORTISONE\HYDROCORTISONE
     Indication: OSTEOARTHRITIS
     Dosage: UNK

REACTIONS (3)
  - Reading disorder [Unknown]
  - Somnolence [Not Recovered/Not Resolved]
  - Dry mouth [Unknown]
